FAERS Safety Report 10974136 (Version 1)
Quarter: 2015Q1

REPORT INFORMATION
  Report Type: Spontaneous
  Country: US (occurrence: None)
  Receive Date: 20150331
  Receipt Date: 20150331
  Transmission Date: 20150721
  Serious: No
  Sender: FDA-Public Use
  Company Number: None

PATIENT

DRUGS (10)
  1. LORAZEPAM. [Concomitant]
     Active Substance: LORAZEPAM
  2. OMEPRAZOLE. [Concomitant]
     Active Substance: OMEPRAZOLE
  3. PAROXETINE [Concomitant]
     Active Substance: PAROXETINE\PAROXETINE HYDROCHLORIDE
  4. ATORVASTATIN [Concomitant]
     Active Substance: ATORVASTATIN
  5. TECFIDERA [Suspect]
     Active Substance: DIMETHYL FUMARATE
  6. AMPYRA [Suspect]
     Active Substance: DALFAMPRIDINE
     Indication: MULTIPLE SCLEROSIS
     Route: 048
     Dates: start: 201207
  7. TAMSULOSIN [Concomitant]
     Active Substance: TAMSULOSIN
  8. OXYCODONE [Concomitant]
     Active Substance: OXYCODONE
  9. BACLOFEN. [Concomitant]
     Active Substance: BACLOFEN
  10. FERROUS SULFATE [Concomitant]
     Active Substance: FERROUS SULFATE\FERROUS SULFATE, DRIED

REACTIONS (3)
  - Haemoglobin decreased [None]
  - Red blood cell count decreased [None]
  - Haematocrit decreased [None]

NARRATIVE: CASE EVENT DATE: 20141107
